FAERS Safety Report 17425091 (Version 2)
Quarter: 2020Q2

REPORT INFORMATION
  Report Type: Report from Study
  Country: US (occurrence: US)
  Receive Date: 20200217
  Receipt Date: 20200428
  Transmission Date: 20200713
  Serious: Yes (Death, Other)
  Sender: FDA-Public Use
  Company Number: US-ROCHE-2542811

PATIENT
  Age: 46 Year
  Sex: Female
  Weight: 45.9 kg

DRUGS (3)
  1. PERTUZUMAB. [Suspect]
     Active Substance: PERTUZUMAB
     Dosage: DATE OF MOST RECENT DOSE OF PERTUZUMAB (840 MG) WAS ON 19/NOV/2014?PERTUZUMAB WILL BE GIVEN USING AN
     Route: 042
     Dates: start: 20141119
  2. GEMCITABINE. [Suspect]
     Active Substance: GEMCITABINE
     Dosage: DATE OF MOST RECENT DOSE OF GEMCITABINE (1200 MG/M2) WAS ON 19/NOV/2014?DOSE LEVEL 0 = GEMCITABINE (
     Route: 042
     Dates: start: 20141119
  3. TRASTUZUMAB. [Suspect]
     Active Substance: TRASTUZUMAB
     Dosage: DATE OF MOST RECENT DOSE OF PERTUZUMAB (8 MG/KG) WAS ON 19/NOV/2014?PERTUZUMAB WILL BE GIVEN USING A
     Route: 041
     Dates: start: 20141119

REACTIONS (2)
  - Infusion related reaction [Recovered/Resolved]
  - Breast cancer metastatic [Fatal]

NARRATIVE: CASE EVENT DATE: 20141119
